FAERS Safety Report 9292094 (Version 1)
Quarter: 2012Q4

REPORT INFORMATION
  Report Type: Spontaneous
  Country: US (occurrence: None)
  Receive Date: 20121005
  Receipt Date: 20121005
  Transmission Date: 20130627
  Serious: Yes (Hospitalization, Other)
  Sender: FDA-Public Use
  Company Number: 2012P1059876

PATIENT
  Age: 53 Year
  Sex: Female

DRUGS (1)
  1. WARFARIN [Suspect]
     Indication: PULMONARY EMBOLISM

REACTIONS (6)
  - Prothrombin time prolonged [None]
  - International normalised ratio increased [None]
  - Gastrointestinal haemorrhage [None]
  - Haematuria [None]
  - Abnormal clotting factor [None]
  - Haemorrhagic diathesis [None]
